FAERS Safety Report 25070197 (Version 1)
Quarter: 2025Q1

REPORT INFORMATION
  Report Type: Spontaneous
  Country: JP (occurrence: JP)
  Receive Date: 20250312
  Receipt Date: 20250312
  Transmission Date: 20250409
  Serious: Yes (Other)
  Sender: MERCK SHARP & DOHME LLC
  Company Number: JP-MSD-M2024-53793

PATIENT
  Age: 89 Year
  Sex: Male

DRUGS (1)
  1. KEYTRUDA [Suspect]
     Active Substance: PEMBROLIZUMAB
     Indication: Head and neck cancer
     Dosage: DOSE DESCRIPTION : 400 MILLIGRAM, EVERY 6 WEEKS?DAILY DOSE : 9.6 MILLIGRAM?REGIMEN DOSE : 400  MI...
     Route: 041
     Dates: start: 202410, end: 202410

REACTIONS (4)
  - Abdominal abscess [Unknown]
  - Brain natriuretic peptide increased [Unknown]
  - Dermatitis psoriasiform [Unknown]
  - Disease recurrence [Unknown]

NARRATIVE: CASE EVENT DATE: 20240101
